FAERS Safety Report 14122001 (Version 1)
Quarter: 2017Q4

REPORT INFORMATION
  Report Type: Report from Study
  Country: US (occurrence: US)
  Receive Date: 20171024
  Receipt Date: 20171024
  Transmission Date: 20180321
  Serious: Yes (Hospitalization)
  Sender: FDA-Public Use
  Company Number: US-BIOGEN-2017BI00474686

PATIENT
  Age: 55 Year
  Sex: Male

DRUGS (1)
  1. ZINBRYTA [Suspect]
     Active Substance: DACLIZUMAB
     Indication: MULTIPLE SCLEROSIS
     Route: 058
     Dates: start: 20170526

REACTIONS (10)
  - Facial bones fracture [Not Recovered/Not Resolved]
  - Face injury [Not Recovered/Not Resolved]
  - Concussion [Not Recovered/Not Resolved]
  - Drug ineffective [Unknown]
  - Blindness unilateral [Not Recovered/Not Resolved]
  - Rib fracture [Not Recovered/Not Resolved]
  - Fall [Recovered/Resolved]
  - Hand fracture [Not Recovered/Not Resolved]
  - Pruritus [Unknown]
  - Balance disorder [Unknown]

NARRATIVE: CASE EVENT DATE: 201709
